FAERS Safety Report 7733960-1 (Version None)
Quarter: 2011Q3

REPORT INFORMATION
  Report Type: 
  Country: None (occurrence: None)
  Receive Date: 20110907
  Receipt Date: 20110905
  Transmission Date: 20111222
  Serious: Yes (Hospitalization)
  Sender: FDA-Public Use
  Company Number: DE-ABBOTT-10P-062-0677836-00

PATIENT
  Sex: Male
  Weight: 117 kg

DRUGS (1)
  1. ZEMPLAR [Suspect]
     Indication: HYPERPARATHYROIDISM SECONDARY
     Dates: start: 20091119

REACTIONS (2)
  - FALL [None]
  - CONTUSION [None]
